FAERS Safety Report 8071369-4 (Version None)
Quarter: 2012Q1

REPORT INFORMATION
  Report Type: 
  Country: None (occurrence: None)
  Receive Date: 20120125
  Receipt Date: 20120118
  Transmission Date: 20120608
  Serious: Yes (Hospitalization)
  Sender: FDA-Public Use
  Company Number: DE-ROCHE-1031758

PATIENT
  Sex: Male
  Weight: 80 kg

DRUGS (3)
  1. HERCEPTIN [Suspect]
     Indication: GASTRIC CANCER
     Route: 042
     Dates: start: 20120110
  2. CISPLATIN [Suspect]
     Indication: GASTRIC CANCER
     Route: 042
     Dates: start: 20120110
  3. FLUOROURACIL [Suspect]
     Indication: GASTRIC CANCER
     Route: 042
     Dates: start: 20120110

REACTIONS (1)
  - VENOUS THROMBOSIS [None]
